FAERS Safety Report 24171542 (Version 2)
Quarter: 2024Q3

REPORT INFORMATION
  Report Type: Spontaneous
  Country: IT (occurrence: IT)
  Receive Date: 20240805
  Receipt Date: 20240814
  Transmission Date: 20241017
  Serious: Yes (Hospitalization, Other)
  Sender: BRISTOL MYERS SQUIBB
  Company Number: IT-BRISTOL-MYERS SQUIBB COMPANY-2024-101650

PATIENT
  Age: 56 Year
  Sex: Female

DRUGS (3)
  1. LUSPATERCEPT [Suspect]
     Active Substance: LUSPATERCEPT
     Indication: Thalassaemia beta
     Dates: start: 20210426, end: 20230706
  2. DEFEROXAMINE [Concomitant]
     Active Substance: DEFEROXAMINE MESYLATE
     Indication: Product used for unknown indication
     Dates: start: 2001
  3. EXJADE [Concomitant]
     Active Substance: DEFERASIROX
     Indication: Product used for unknown indication

REACTIONS (2)
  - Thymoma [Recovered/Resolved]
  - Lymphangioleiomyomatosis [Not Recovered/Not Resolved]

NARRATIVE: CASE EVENT DATE: 20230101
